FAERS Safety Report 4359232-3 (Version None)
Quarter: 2004Q2

REPORT INFORMATION
  Report Type: 
  Country: None (occurrence: None)
  Receive Date: 20040517
  Receipt Date: 20040517
  Transmission Date: 20050107
  Serious: Yes (Hospitalization)
  Sender: FDA-Public Use
  Company Number: None

PATIENT
  Age: 78 Year
  Sex: Male

DRUGS (5)
  1. CELLCEPT [Suspect]
     Indication: IMMUNOSUPPRESSION
     Dosage: 250 MG BID
     Dates: start: 20030917
  2. PYRIDOSTIGMINE BROMIDE [Concomitant]
  3. KCL TAB [Concomitant]
  4. ATENOLOL [Concomitant]
  5. LOPERAMIDE HCL [Concomitant]

REACTIONS (2)
  - GASTROINTESTINAL HAEMORRHAGE [None]
  - MELAENA [None]
